FAERS Safety Report 17218259 (Version 1)
Quarter: 2019Q4

REPORT INFORMATION
  Report Type: Spontaneous
  Country: SE (occurrence: SE)
  Receive Date: 20191231
  Receipt Date: 20191231
  Transmission Date: 20200122
  Serious: Yes (Hospitalization)
  Sender: FDA-Public Use
  Company Number: SE-TEVA-2019-SE-1158783

PATIENT
  Age: 28 Year
  Sex: Female

DRUGS (4)
  1. QUETIAPINE. [Suspect]
     Active Substance: QUETIAPINE
     Dosage: 250MG
     Dates: start: 20180115, end: 20180115
  2. THERALEN [Suspect]
     Active Substance: TRIMEPRAZINE
     Dosage: ^SMALL DOSES^
     Dates: start: 20180115, end: 20180115
  3. PROPAVAN [Suspect]
     Active Substance: PROPIOMAZINE
     Dosage: 1 GRAM
     Route: 048
     Dates: start: 20180115, end: 20180115
  4. STESOLID [Suspect]
     Active Substance: DIAZEPAM
     Dosage: 10 MILLIGRAM
     Dates: start: 20180115, end: 20180115

REACTIONS (3)
  - Fatigue [Unknown]
  - Intentional overdose [Unknown]
  - Intentional self-injury [Unknown]

NARRATIVE: CASE EVENT DATE: 20180115
